FAERS Safety Report 6641577-5 (Version None)
Quarter: 2010Q1

REPORT INFORMATION
  Report Type: 
  Country: None (occurrence: None)
  Receive Date: 20100317
  Receipt Date: 20100317
  Transmission Date: 20100710
  Serious: Yes (Other)
  Sender: FDA-Public Use
  Company Number: None

PATIENT
  Age: 68 Year
  Sex: Female
  Weight: 67.1 kg

DRUGS (4)
  1. HYDROMORPHONE HCL [Suspect]
     Indication: PAIN
     Dosage: 0.4MG/ML PCA @ (0./0.2/10)
     Dates: start: 20091227
  2. MAGNESIUM SULFATE [Concomitant]
  3. . [Concomitant]
  4. SODIUM CHLORIDE [Concomitant]

REACTIONS (2)
  - LETHARGY [None]
  - SEDATION [None]
